FAERS Safety Report 8126434-X (Version None)
Quarter: 2012Q1

REPORT INFORMATION
  Report Type: 
  Country: None (occurrence: None)
  Receive Date: 20120209
  Receipt Date: 20120206
  Transmission Date: 20120608
  Serious: No
  Sender: FDA-Public Use
  Company Number: US-PFIZER INC-2010175581

PATIENT
  Sex: Female
  Weight: 81.633 kg

DRUGS (7)
  1. LISINOPRIL [Concomitant]
     Dosage: UNK
  2. CITALOPRAM HYDROBROMIDE [Concomitant]
     Dosage: UNK
  3. METFORMIN [Concomitant]
     Indication: DIABETES MELLITUS
     Dosage: 500 MG, 2X/DAY
  4. EFFEXOR XR [Suspect]
     Indication: ANXIETY
  5. EFFEXOR XR [Suspect]
     Indication: DEPRESSION
     Dosage: 150 MG, 1X/DAY
     Route: 048
     Dates: start: 20101216
  6. ASENAPINE [Concomitant]
     Indication: BIPOLAR DISORDER
     Route: 060
  7. CLONAZEPAM [Concomitant]
     Dosage: 0.5 MG, UNK

REACTIONS (5)
  - DRUG ADMINISTRATION ERROR [None]
  - FEELING ABNORMAL [None]
  - DEPRESSION [None]
  - DIZZINESS [None]
  - CRYING [None]
